FAERS Safety Report 5330472-X (Version None)
Quarter: 2007Q2

REPORT INFORMATION
  Report Type: 
  Country: None (occurrence: None)
  Receive Date: 20070517
  Receipt Date: 20070502
  Transmission Date: 20071010
  Serious: Yes (Life-Threatening, Hospitalization)
  Sender: FDA-Public Use
  Company Number: 280001L07JPN

PATIENT
  Age: 32 Year
  Sex: Female

DRUGS (2)
  1. UROFOLLITROPIN [Suspect]
     Indication: ASSISTED FERTILISATION
     Dosage: 225 IU
  2. CHORIONIC GONADOTROPIN [Suspect]
     Dosage: 10000 IU

REACTIONS (7)
  - HAEMOCONCENTRATION [None]
  - HYPOVOLAEMIC SHOCK [None]
  - OBSTETRIC PROCEDURE COMPLICATION [None]
  - OVARIAN HYPERSTIMULATION SYNDROME [None]
  - PLEURAL EFFUSION [None]
  - POLYCYSTIC OVARIES [None]
  - RESPIRATORY FAILURE [None]
